FAERS Safety Report 6239725-4 (Version None)
Quarter: 2009Q2

REPORT INFORMATION
  Report Type: 
  Country: None (occurrence: None)
  Receive Date: 20090619
  Receipt Date: 20090605
  Transmission Date: 20091009
  Serious: Yes (Hospitalization)
  Sender: FDA-Public Use
  Company Number: 8028057

PATIENT
  Age: 58 Year
  Sex: Female
  Weight: 77 kg

DRUGS (10)
  1. CERTOLIZUMAB PEGOL [Suspect]
     Indication: RHEUMATOID ARTHRITIS
     Dosage: 200 MG 1/2W SC
     Route: 058
     Dates: start: 20060112, end: 20060629
  2. CERTOLIZUMAB PEGOL [Suspect]
     Indication: RHEUMATOID ARTHRITIS
     Dosage: 400 MG 1/2W SC
     Route: 058
     Dates: start: 20060629, end: 20061129
  3. CERTOLIZUMAB PEGOL [Suspect]
     Indication: RHEUMATOID ARTHRITIS
     Dosage: 400 MG 1/2W SC
     Route: 058
     Dates: start: 20070102, end: 20070712
  4. CERTOLIZUMAB PEGOL [Suspect]
     Indication: RHEUMATOID ARTHRITIS
     Dosage: 400 MG 1/2W SC
     Route: 058
     Dates: start: 20070823, end: 20070906
  5. ENCORTON [Concomitant]
  6. METHOTREXATE [Concomitant]
  7. FOLIC ACID [Concomitant]
  8. DICLOFENAC [Concomitant]
  9. ENOXAPARIN SODIUM [Concomitant]
  10. POLPRAZOL [Concomitant]

REACTIONS (6)
  - HIP SURGERY [None]
  - IMPAIRED HEALING [None]
  - INFECTED SKIN ULCER [None]
  - PNEUMONIA [None]
  - SKIN ULCER [None]
  - WOUND INFECTION PSEUDOMONAS [None]
